FAERS Safety Report 8801175 (Version 2)
Quarter: 2012Q4

REPORT INFORMATION
  Report Type: Report from Study
  Country: GR (occurrence: GR)
  Receive Date: 20120921
  Receipt Date: 20120925
  Transmission Date: 20130627
  Serious: Yes (Hospitalization)
  Sender: FDA-Public Use
  Company Number: GR-ABBOTT-12P-066-0979141-00

PATIENT
  Age: 67 Year
  Sex: Male
  Weight: 76 kg

DRUGS (8)
  1. ZEMPLAR [Suspect]
     Indication: RENAL FAILURE CHRONIC
     Route: 042
     Dates: start: 20120501
  2. CARVEDILOL [Concomitant]
     Indication: HYPERTENSION
     Route: 048
     Dates: start: 20111005
  3. OMNIC TOCAS [Concomitant]
     Indication: BENIGN PROSTATIC HYPERPLASIA
     Dates: start: 20100308
  4. ATORVASTATIN [Concomitant]
     Indication: HYPERLIPIDAEMIA
     Dates: start: 2010
  5. OMACOR [Concomitant]
     Indication: HYPERLIPIDAEMIA
     Dates: start: 2010
  6. SEVELAMER [Concomitant]
     Indication: HYPERPHOSPHATAEMIA
     Dates: start: 2009
  7. LANTHANUM CARBONATE [Concomitant]
     Indication: HYPERPHOSPHATAEMIA
     Dates: start: 2010
  8. LYRICA [Concomitant]
     Indication: NEURALGIA
     Dates: start: 2010

REACTIONS (4)
  - Peripheral ischaemia [Recovering/Resolving]
  - Arteriovenous fistula site complication [Recovered/Resolved]
  - Peripheral coldness [Recovering/Resolving]
  - Skin ulcer [Recovering/Resolving]
